FAERS Safety Report 7083456-8 (Version None)
Quarter: 2010Q4

REPORT INFORMATION
  Report Type: 
  Country: None (occurrence: None)
  Receive Date: 20101104
  Receipt Date: 20101026
  Transmission Date: 20110411
  Serious: Yes (Other)
  Sender: FDA-Public Use
  Company Number: B0680648A

PATIENT
  Sex: Male

DRUGS (4)
  1. PAXIL [Suspect]
     Indication: DEPRESSION
     Route: 048
     Dates: start: 20020101
  2. SEDIEL [Suspect]
     Indication: DEPRESSION
     Dosage: 180MG PER DAY
     Route: 048
     Dates: start: 20100526, end: 20101002
  3. AMOBAN [Concomitant]
     Indication: INSOMNIA
     Dosage: 7.5MG PER DAY
     Route: 048
     Dates: start: 20100526
  4. CRESTOR [Concomitant]
     Indication: LIPIDS ABNORMAL
     Dosage: 2.5MG PER DAY
     Route: 048
     Dates: start: 20100906

REACTIONS (2)
  - AGGRESSION [None]
  - THEFT [None]
